FAERS Safety Report 9925388 (Version 1)
Quarter: 2014Q1

REPORT INFORMATION
  Report Type: Spontaneous
  Country: US (occurrence: None)
  Receive Date: 20140225
  Receipt Date: 20140225
  Transmission Date: 20141002
  Serious: Yes (Hospitalization)
  Sender: FDA-Public Use
  Company Number: None

PATIENT
  Age: 82 Year
  Sex: Male
  Weight: 85 kg

DRUGS (7)
  1. AMIODARONE [Suspect]
     Indication: ATRIAL FIBRILLATION
     Route: 048
     Dates: start: 20140204, end: 20140218
  2. XARELTO [Concomitant]
  3. LIPITOR [Concomitant]
  4. HYDRALAZINE [Concomitant]
  5. METOPROLOL [Concomitant]
  6. TRIBENZOR [Concomitant]
  7. FLOMAX [Concomitant]

REACTIONS (3)
  - Pneumonitis [None]
  - Pulmonary alveolar haemorrhage [None]
  - Haemoptysis [None]
